FAERS Safety Report 8998576 (Version 2)
Quarter: 2013Q1

REPORT INFORMATION
  Report Type: Report from Study
  Country: AR (occurrence: AR)
  Receive Date: 20130102
  Receipt Date: 20130305
  Transmission Date: 20140127
  Serious: Yes (Other)
  Sender: FDA-Public Use
  Company Number: AR-ABBOTT-12P-007-1029374-00

PATIENT
  Age: 43 Year
  Sex: Female

DRUGS (1)
  1. HUMIRA [Suspect]
     Indication: RHEUMATOID ARTHRITIS
     Route: 058
     Dates: start: 20100913, end: 20121214

REACTIONS (1)
  - Musculoskeletal discomfort [Not Recovered/Not Resolved]
